FAERS Safety Report 5572616-0 (Version None)
Quarter: 2007Q4

REPORT INFORMATION
  Report Type: 
  Country: None (occurrence: None)
  Receive Date: 20071130
  Receipt Date: 20070209
  Transmission Date: 20080405
  Serious: Yes (Other)
  Sender: FDA-Public Use
  Company Number: WAES 0604USA03108

PATIENT
  Age: 83 Year
  Sex: Female
  Weight: 68.0396 kg

DRUGS (6)
  1. FOSAMAX [Suspect]
     Dosage: PO
     Route: 048
  2. MOBIC [Concomitant]
  3. ULTRACET [Concomitant]
  4. CALCIUM GLUCONATE [Concomitant]
  5. ENALAPRIL MALEATE + HYDROCHLOR [Concomitant]
  6. HYDROCHLOROTHIAZIDE [Concomitant]

REACTIONS (2)
  - OSTEONECROSIS [None]
  - THERMAL BURN [None]
